FAERS Safety Report 13073724 (Version 1)
Quarter: 2016Q4

REPORT INFORMATION
  Report Type: Spontaneous
  Country: DK (occurrence: DK)
  Receive Date: 20161229
  Receipt Date: 20161229
  Transmission Date: 20170207
  Serious: Yes (Other)
  Sender: FDA-Public Use
  Company Number: DK-TEVA-723237ACC

PATIENT
  Sex: Male

DRUGS (2)
  1. QUETIAPINE. [Suspect]
     Active Substance: QUETIAPINE
     Indication: INSOMNIA
     Dosage: 25 MILLIGRAM DAILY; DOSAGE: 25 MG EVENING.
     Dates: start: 2015
  2. SERTRALINE [Concomitant]
     Active Substance: SERTRALINE HYDROCHLORIDE
     Indication: PRODUCT USED FOR UNKNOWN INDICATION
     Dates: start: 2013, end: 2016

REACTIONS (3)
  - Sleep disorder [Unknown]
  - Dissociative identity disorder [Unknown]
  - Rapid eye movements sleep abnormal [Unknown]

NARRATIVE: CASE EVENT DATE: 2016
